FAERS Safety Report 19625259 (Version 3)
Quarter: 2021Q3

REPORT INFORMATION
  Report Type: Spontaneous
  Country: US (occurrence: US)
  Receive Date: 20210729
  Receipt Date: 20210901
  Transmission Date: 20211014
  Serious: No
  Sender: FDA-Public Use
  Company Number: NVSC2021US165807

PATIENT
  Sex: Female

DRUGS (1)
  1. ZOLGENSMA [Suspect]
     Active Substance: ONASEMNOGENE ABEPARVOVEC-XIOI
     Indication: PRODUCT USED FOR UNKNOWN INDICATION
     Dosage: 1 UNK, ONCE/SINGLE
     Route: 042
     Dates: start: 20180122

REACTIONS (5)
  - Pyrexia [Unknown]
  - Constipation [Unknown]
  - Scoliosis [Unknown]
  - Condition aggravated [Unknown]
  - Blood calcium decreased [Unknown]
